FAERS Safety Report 9394474 (Version 1)
Quarter: 2013Q3

REPORT INFORMATION
  Report Type: Spontaneous
  Country: FR (occurrence: FR)
  Receive Date: 20130711
  Receipt Date: 20130711
  Transmission Date: 20140515
  Serious: Yes (Hospitalization)
  Sender: FDA-Public Use
  Company Number: FR-TEVA-417132ISR

PATIENT
  Age: 79 Year
  Sex: Male

DRUGS (1)
  1. FUROSEMIDE TEVA 40 MG [Suspect]
     Dosage: 1 DOSAGE FORMS DAILY; SCORED TABLETS
     Route: 048
     Dates: start: 20130603, end: 20130608

REACTIONS (5)
  - Syncope [Recovered/Resolved with Sequelae]
  - Fall [Recovered/Resolved with Sequelae]
  - Face injury [Recovered/Resolved with Sequelae]
  - Clavicle fracture [Recovered/Resolved with Sequelae]
  - Somnolence [Unknown]
